FAERS Safety Report 4536044-9 (Version None)
Quarter: 2004Q4

REPORT INFORMATION
  Report Type: 
  Country: None (occurrence: None)
  Receive Date: 20041214
  Receipt Date: 20030827
  Transmission Date: 20050328
  Serious: Yes (Other)
  Sender: FDA-Public Use
  Company Number: 2003174796US

PATIENT
  Sex: Female

DRUGS (1)
  1. XANAX [Suspect]
     Dosage: ORAL
     Route: 048

REACTIONS (1)
  - DRUG WITHDRAWAL CONVULSIONS [None]
